FAERS Safety Report 13397120 (Version 2)
Quarter: 2017Q2

REPORT INFORMATION
  Report Type: Report from Study
  Country: CA (occurrence: CA)
  Receive Date: 20170403
  Receipt Date: 20170630
  Transmission Date: 20170830
  Serious: Yes (Other)
  Sender: FDA-Public Use
  Company Number: CA-JNJFOC-20170332792

PATIENT
  Age: 15 Year
  Sex: Female
  Weight: 76 kg

DRUGS (3)
  1. REMICADE [Suspect]
     Active Substance: INFLIXIMAB
     Indication: COLITIS ULCERATIVE
     Route: 042
     Dates: start: 20140510
  2. AZATHIOPRINE. [Concomitant]
     Active Substance: AZATHIOPRINE
     Route: 048
  3. SULFATE FERREUX [Concomitant]
     Route: 048

REACTIONS (2)
  - Impaired healing [Recovering/Resolving]
  - Scoliosis [Unknown]

NARRATIVE: CASE EVENT DATE: 20170524
